FAERS Safety Report 5075058-X (Version None)
Quarter: 2006Q3

REPORT INFORMATION
  Report Type: 
  Country: None (occurrence: None)
  Receive Date: 20060809
  Receipt Date: 20060619
  Transmission Date: 20061208
  Serious: Yes (Death, Hospitalization)
  Sender: FDA-Public Use
  Company Number: US-AMGEN-US183510

PATIENT
  Sex: Male
  Weight: 89.9 kg

DRUGS (14)
  1. ARANESP [Suspect]
     Indication: ANAEMIA OF MALIGNANT DISEASE
     Route: 058
     Dates: start: 20060412, end: 20060612
  2. METHOTREXATE [Suspect]
     Route: 042
     Dates: start: 20060508, end: 20060509
  3. MESNA [Suspect]
     Route: 042
     Dates: start: 20060606, end: 20060611
  4. K-DUR 10 [Suspect]
     Dates: start: 20060606, end: 20060612
  5. LASIX [Concomitant]
  6. PLATELETS [Concomitant]
     Route: 042
  7. RED BLOOD CELLS [Concomitant]
     Route: 042
  8. PROZAC [Concomitant]
     Route: 048
     Dates: start: 20060608, end: 20060611
  9. PRILOSEC [Concomitant]
     Route: 048
     Dates: start: 20060315, end: 20060611
  10. VALTREX [Concomitant]
     Route: 048
     Dates: start: 20060608, end: 20060612
  11. DIFLUCAN [Concomitant]
     Route: 048
     Dates: start: 20060608, end: 20060612
  12. CIPRO [Concomitant]
     Dates: start: 20060605, end: 20060612
  13. LIPITOR [Concomitant]
     Route: 048
     Dates: start: 20060424, end: 20060611
  14. PAXIL [Concomitant]
     Route: 048
     Dates: start: 20060605, end: 20060611

REACTIONS (14)
  - ARRHYTHMIA [None]
  - BLOOD POTASSIUM INCREASED [None]
  - BLOOD PRESSURE INCREASED [None]
  - CARDIAC ARREST [None]
  - CARDIAC FAILURE ACUTE [None]
  - CARDIAC HYPERTROPHY [None]
  - EPISTAXIS [None]
  - FLUID OVERLOAD [None]
  - HAEMATURIA [None]
  - HAEMOGLOBIN DECREASED [None]
  - HYPERKALAEMIA [None]
  - LOSS OF CONSCIOUSNESS [None]
  - PULMONARY CONGESTION [None]
  - WEIGHT INCREASED [None]
